FAERS Safety Report 25765614 (Version 1)
Quarter: 2025Q3

REPORT INFORMATION
  Report Type: Spontaneous
  Country: EU (occurrence: EU)
  Receive Date: 20250905
  Receipt Date: 20250905
  Transmission Date: 20251020
  Serious: Yes (Hospitalization)
  Sender: REGENERON
  Company Number: EU-BAYER-2025A115834

PATIENT
  Sex: Female

DRUGS (1)
  1. EYLEA [Suspect]
     Active Substance: AFLIBERCEPT
     Indication: Product used for unknown indication
     Dates: start: 20250801

REACTIONS (9)
  - Colitis ischaemic [Unknown]
  - Head discomfort [Unknown]
  - Blood pressure systolic increased [Unknown]
  - Tachycardia [Unknown]
  - Abdominal pain [Unknown]
  - Diarrhoea haemorrhagic [Unknown]
  - Vomiting [Unknown]
  - Hypokalaemia [Unknown]
  - Cough [Unknown]

NARRATIVE: CASE EVENT DATE: 20250801
